FAERS Safety Report 4774613-1 (Version None)
Quarter: 2005Q3

REPORT INFORMATION
  Report Type: 
  Country: None (occurrence: None)
  Receive Date: 20050921
  Receipt Date: 20050916
  Transmission Date: 20060218
  Serious: Yes (Death)
  Sender: FDA-Public Use
  Company Number: 2005UW13774

PATIENT
  Age: 87 Year
  Sex: Female
  Weight: 51.7 kg

DRUGS (12)
  1. SEROQUEL [Suspect]
     Dosage: 25 MG TITRATED TO 400 MG BID
     Route: 048
     Dates: start: 20050701
  2. DEPAKOTE [Concomitant]
  3. ESTRADIOL [Concomitant]
  4. LEXAPRO [Concomitant]
  5. OSCAL [Concomitant]
  6. NAPROSYN [Concomitant]
  7. EXELON [Concomitant]
  8. PRILOSEC [Concomitant]
  9. TYLENOL [Concomitant]
  10. TRAZODONE [Concomitant]
  11. COGENTIN [Concomitant]
  12. DULCOLAX [Concomitant]

REACTIONS (1)
  - CARDIO-RESPIRATORY ARREST [None]
